FAERS Safety Report 9784111 (Version 1)
Quarter: 2013Q4

REPORT INFORMATION
  Report Type: Spontaneous
  Country: RU (occurrence: RU)
  Receive Date: 20131226
  Receipt Date: 20131226
  Transmission Date: 20140711
  Serious: Yes (Other)
  Sender: FDA-Public Use
  Company Number: PHHY2013RU152195

PATIENT
  Age: 59 Year
  Sex: Female

DRUGS (1)
  1. ACLASTA [Suspect]

REACTIONS (2)
  - Upper limb fracture [Unknown]
  - Rib fracture [Unknown]
